FAERS Safety Report 17502043 (Version 5)
Quarter: 2020Q2

REPORT INFORMATION
  Report Type: Spontaneous
  Country: FR (occurrence: FR)
  Receive Date: 20200305
  Receipt Date: 20200604
  Transmission Date: 20200713
  Serious: Yes (Death, Hospitalization)
  Sender: FDA-Public Use
  Company Number: NVSC2020FR057352

PATIENT
  Age: 39 Year
  Sex: Male
  Weight: 59 kg

DRUGS (32)
  1. NEORAL [Suspect]
     Active Substance: CYCLOSPORINE
     Indication: PROPHYLAXIS
     Dosage: 125 MG, QD
     Route: 065
     Dates: start: 20190112
  2. NEORAL [Suspect]
     Active Substance: CYCLOSPORINE
     Dosage: 100 MG, QD (2 DOSAGES 50 MG DAILY)
     Route: 065
     Dates: start: 20190112
  3. NEORAL [Suspect]
     Active Substance: CYCLOSPORINE
     Dosage: 125 MG DAILY
     Route: 065
     Dates: start: 20190627
  4. FLUDARABINE PHOSPHATE. [Suspect]
     Active Substance: FLUDARABINE PHOSPHATE
     Indication: ALLOGENIC STEM CELL TRANSPLANTATION
     Dosage: 40 MG/M2, UNKNOWN
     Route: 042
     Dates: start: 20190102, end: 20200105
  5. GLIVEC [Concomitant]
     Active Substance: IMATINIB MESYLATE
     Indication: PRODUCT USED FOR UNKNOWN INDICATION
     Dosage: 200 MG DAILY
     Route: 042
     Dates: start: 20190521, end: 20190625
  6. VANCOMYCIN [Concomitant]
     Active Substance: VANCOMYCIN
     Dosage: 2.5 G, QD
     Route: 042
     Dates: start: 20190116, end: 20190121
  7. NEURONTIN [Concomitant]
     Active Substance: GABAPENTIN
     Indication: EPILEPSY
     Dosage: 600 MG, QD
     Route: 048
     Dates: start: 20190206
  8. CYCLOPHOSPHAMIDE. [Suspect]
     Active Substance: CYCLOPHOSPHAMIDE
     Indication: PROPHYLAXIS
     Dosage: 3800 MG
     Route: 042
     Dates: start: 20190110, end: 20190111
  9. THIOTEPA. [Suspect]
     Active Substance: THIOTEPA
     Indication: ALLOGENIC STEM CELL TRANSPLANTATION
     Dosage: 380 MG
     Route: 042
     Dates: start: 20190101, end: 20190101
  10. PONATINIB [Concomitant]
     Active Substance: PONATINIB
     Dosage: 15 MG, QD
     Route: 048
     Dates: start: 20190315, end: 20190501
  11. CORTANCYL [Concomitant]
     Active Substance: PREDNISONE
     Dosage: 30 MG, QD
     Route: 065
  12. VANCOMYCIN [Concomitant]
     Active Substance: VANCOMYCIN
     Indication: INFECTION
     Dosage: 2 G, QD
     Route: 042
     Dates: start: 20190114, end: 20190115
  13. CYCLOPHOSPHAMIDE. [Suspect]
     Active Substance: CYCLOPHOSPHAMIDE
     Dosage: 3800 MG, UNKNOWN
     Route: 042
     Dates: start: 20190112
  14. PONATINIB [Concomitant]
     Active Substance: PONATINIB
     Indication: IMMUNOMODULATORY THERAPY
     Dosage: 15 MG DAILY
     Route: 065
     Dates: end: 20190521
  15. TAZOCILLINE [Concomitant]
     Active Substance: PIPERACILLIN SODIUM\TAZOBACTAM SODIUM
     Dosage: 16 G, QD
     Route: 042
     Dates: start: 20190129, end: 20190206
  16. FLUDARABINE [Suspect]
     Active Substance: FLUDARABINE PHOSPHATE
     Indication: ALLOGENIC STEM CELL TRANSPLANTATION
     Dosage: 40 MG/M2
     Route: 042
     Dates: start: 20190102, end: 20190105
  17. CHOLURSO [Concomitant]
     Active Substance: URSODIOL
     Indication: PROPHYLAXIS
     Dosage: 750 MG, UNKNOWN
     Route: 065
     Dates: start: 20181231
  18. CLAMOXYL [Concomitant]
     Indication: INFECTION PROPHYLAXIS
     Dosage: 1 G, QD
     Route: 048
     Dates: start: 20190128
  19. BUSULFAN. [Suspect]
     Active Substance: BUSULFAN
     Indication: ALLOGENIC STEM CELL TRANSPLANTATION
     Dosage: 243.2 MG, UNKNOWN
     Route: 042
     Dates: start: 20190102, end: 20190103
  20. BACTRIM [Concomitant]
     Active Substance: SULFAMETHOXAZOLE\TRIMETHOPRIM
     Indication: INFECTION PROPHYLAXIS
     Dosage: 960 MG, QD
     Route: 048
     Dates: start: 20190128
  21. URSODEOXYCHOLIC ACID [Concomitant]
     Active Substance: URSODIOL
     Indication: PROPHYLAXIS
     Dosage: 750 MG, UNKNOWN
     Route: 065
     Dates: start: 20181231
  22. SPECIAFOLDINE [Concomitant]
     Active Substance: FOLIC ACID
     Indication: ANAEMIA PROPHYLAXIS
     Dosage: 5 MG, QD
     Route: 048
     Dates: start: 20190307
  23. CORTANCYL [Concomitant]
     Active Substance: PREDNISONE
     Dosage: 25 MG DAILY
     Route: 065
  24. VALACICLOVIR [Concomitant]
     Active Substance: VALACYCLOVIR HYDROCHLORIDE
     Indication: INFECTION PROPHYLAXIS
     Dosage: 1 G, QD
     Route: 048
     Dates: start: 20181231
  25. TRIFLUCAN [Concomitant]
     Active Substance: FLUCONAZOLE
     Indication: ANTIFUNGAL PROPHYLAXIS
     Dosage: 400 MG, QD
     Route: 048
     Dates: start: 20190107, end: 20190315
  26. NEORAL [Suspect]
     Active Substance: CYCLOSPORINE
     Dosage: 150 MG, QD (2 DOSAGES 75 MG DAILY)
     Route: 048
     Dates: start: 201905
  27. NEORAL [Suspect]
     Active Substance: CYCLOSPORINE
     Dosage: 2 DOSAGES 100 MG DAILY
     Route: 065
     Dates: start: 20190708, end: 20190731
  28. THIOTEPA. [Suspect]
     Active Substance: THIOTEPA
     Dosage: 380 MG, UNKNOWN
     Route: 042
     Dates: start: 20181231, end: 20190101
  29. CELLCEPT [Suspect]
     Active Substance: MYCOPHENOLATE MOFETIL\MYCOPHENOLATE MOFETIL HYDROCHLORIDE
     Indication: PRODUCT USED FOR UNKNOWN INDICATION
     Dosage: UNK
     Route: 065
  30. CORTANCYL [Concomitant]
     Active Substance: PREDNISONE
     Indication: PRODUCT USED FOR UNKNOWN INDICATION
     Dosage: 40 MG, QD
     Route: 065
  31. TAZOCILLINE [Concomitant]
     Active Substance: PIPERACILLIN SODIUM\TAZOBACTAM SODIUM
     Indication: INFECTION
     Dosage: 16 G, QD
     Route: 042
     Dates: start: 20190113, end: 20190127
  32. AMOXICILLIN TRIHYDRATE [Concomitant]
     Active Substance: AMOXICILLIN
     Indication: INFECTION PROPHYLAXIS
     Dosage: 1 G, QD
     Route: 048
     Dates: start: 20190128

REACTIONS (2)
  - Acute polyneuropathy [Fatal]
  - Chronic graft versus host disease [Fatal]

NARRATIVE: CASE EVENT DATE: 20190512
